FAERS Safety Report 4972855-3 (Version None)
Quarter: 2006Q2

REPORT INFORMATION
  Report Type: 
  Country: None (occurrence: None)
  Receive Date: 20060410
  Receipt Date: 20060328
  Transmission Date: 20061013
  Serious: Yes (Death)
  Sender: FDA-Public Use
  Company Number: 2005161748

PATIENT
  Age: 35 Year
  Sex: Male
  Weight: 91.173 kg

DRUGS (6)
  1. VIAGRA [Suspect]
     Indication: ERECTILE DYSFUNCTION
     Dosage: 50 MG (50 MG, AS NECESSARY),
     Dates: start: 20050101, end: 20050101
  2. INSULIN [Concomitant]
  3. TOPROL-XL [Concomitant]
  4. MAVIK [Concomitant]
  5. CALCIUM GLUCONATE [Concomitant]
  6. MEVACOR [Concomitant]

REACTIONS (2)
  - BLOOD TESTOSTERONE ABNORMAL [None]
  - DRUG INEFFECTIVE [None]
